FAERS Safety Report 25307669 (Version 1)
Quarter: 2025Q2

REPORT INFORMATION
  Report Type: Spontaneous
  Country: IL (occurrence: IL)
  Receive Date: 20250513
  Receipt Date: 20250513
  Transmission Date: 20250716
  Serious: Yes (Death, Other)
  Sender: SANOFI AVENTIS
  Company Number: IL-SA-2025SA134240

PATIENT
  Age: 3 Year
  Sex: Male

DRUGS (2)
  1. REZUROCK [Suspect]
     Active Substance: BELUMOSUDIL
     Indication: Product used for unknown indication
     Route: 065
  2. RUXOLITINIB [Concomitant]
     Active Substance: RUXOLITINIB

REACTIONS (2)
  - Death [Fatal]
  - Product use issue [Unknown]
